FAERS Safety Report 8078392-4 (Version None)
Quarter: 2012Q1

REPORT INFORMATION
  Report Type: 
  Country: None (occurrence: None)
  Receive Date: 20120123
  Receipt Date: 20120109
  Transmission Date: 20120608
  Serious: Yes (Hospitalization)
  Sender: FDA-Public Use
  Company Number: 2012MA000633

PATIENT
  Age: 44 Year
  Sex: Female

DRUGS (4)
  1. HYDROCHLOROTHIAZIDE [Concomitant]
  2. CLONIDINE HCL [Suspect]
     Dosage: 0.3 MG;QW;TDER
     Route: 062
  3. SIMVASTATIN [Concomitant]
  4. METOPROLOL [Concomitant]

REACTIONS (7)
  - VOMITING [None]
  - HAEMATOMA [None]
  - CHEST DISCOMFORT [None]
  - FATIGUE [None]
  - DIZZINESS [None]
  - CORONARY OSTIAL STENOSIS [None]
  - CORONARY ARTERY DISSECTION [None]
